FAERS Safety Report 5333437-7 (Version None)
Quarter: 2007Q2

REPORT INFORMATION
  Report Type: 
  Country: None (occurrence: None)
  Receive Date: 20070521
  Receipt Date: 20070509
  Transmission Date: 20071010
  Serious: Yes (Hospitalization, Other)
  Sender: FDA-Public Use
  Company Number: 16445

PATIENT
  Age: 48 Year
  Sex: Male

DRUGS (4)
  1. MITOMYCIN [Suspect]
     Indication: ADENOCARCINOMA
     Dosage: 30 MG   IP
     Route: 033
  2. MITOMYCIN [Suspect]
     Indication: METASTATIC NEOPLASM
     Dosage: 30 MG   IP
     Route: 033
  3. MITOMYCIN [Suspect]
     Indication: ADENOCARCINOMA
     Dosage: 10 MG   IP
     Route: 033
  4. MITOMYCIN [Suspect]
     Indication: METASTATIC NEOPLASM
     Dosage: 10 MG   IP
     Route: 033

REACTIONS (5)
  - HYPERAEMIA [None]
  - SCROTAL DISORDER [None]
  - SCROTAL OEDEMA [None]
  - SCROTAL ULCER [None]
  - TESTICULAR DISORDER [None]
